FAERS Safety Report 6566259-X (Version None)
Quarter: 2010Q1

REPORT INFORMATION
  Report Type: 
  Country: None (occurrence: None)
  Receive Date: 20100202
  Receipt Date: 20100127
  Transmission Date: 20100710
  Serious: Yes (Hospitalization)
  Sender: FDA-Public Use
  Company Number: US-BRISTOL-MYERS SQUIBB COMPANY-14953160

PATIENT
  Age: 63 Year
  Sex: Female

DRUGS (2)
  1. COUMADIN [Suspect]
     Indication: COAGULOPATHY
     Dosage: 5MG AND 2.5MG AT ALTERNATIVE DAYS
     Route: 048
     Dates: start: 19800101
  2. SPIRIVA [Suspect]
     Indication: CHRONIC OBSTRUCTIVE PULMONARY DISEASE
     Dosage: ROUT KAI
     Route: 055
     Dates: start: 20060101

REACTIONS (1)
  - COAGULOPATHY [None]
